FAERS Safety Report 6790028 (Version 4)
Quarter: 2012Q4

REPORT INFORMATION
  Report Type: Report from Study
  Country: US (occurrence: US)
  Receive Date: 20081017
  Receipt Date: 20121210
  Transmission Date: 20130627
  Serious: Yes (Hospitalization, Other)
  Sender: FDA-Public Use
  Company Number: US-ROCHE-589819

PATIENT
  Age: 80 Year
  Sex: Male
  Weight: 78 kg

DRUGS (3)
  1. CAPECITABINE [Suspect]
     Indication: PANCREATIC CARCINOMA
     Dosage: DOSE REPORTED AS: 500 MG AM, 1000 MG PM.
     Route: 065
     Dates: start: 20080516, end: 20081112
  2. CAPECITABINE [Suspect]
     Dosage: LOWERED DOSE.
     Route: 065
  3. ERLOTINIB [Suspect]
     Indication: NEOPLASM MALIGNANT
     Route: 065

REACTIONS (3)
  - Colon neoplasm [Unknown]
  - Palmar-plantar erythrodysaesthesia syndrome [Recovering/Resolving]
  - Drug ineffective [Unknown]
